FAERS Safety Report 10960000 (Version 1)
Quarter: 2015Q1

REPORT INFORMATION
  Report Type: Spontaneous
  Country: US (occurrence: US)
  Receive Date: 20150327
  Receipt Date: 20150327
  Transmission Date: 20150721
  Serious: No
  Sender: FDA-Public Use
  Company Number: US-009507513-1503USA005348

PATIENT
  Age: 34 Year
  Sex: Female
  Weight: 81.63 kg

DRUGS (7)
  1. OMEPRAZOLE. [Concomitant]
     Active Substance: OMEPRAZOLE
     Dosage: UNK
  2. METHADONE HYDROCHLORIDE. [Concomitant]
     Active Substance: METHADONE HYDROCHLORIDE
     Dosage: UNK
  3. NEXPLANON [Suspect]
     Active Substance: ETONOGESTREL
     Indication: CONTRACEPTION
     Dosage: 3 YEAR IMPLANT IN LEFT ARM
     Route: 059
     Dates: start: 20150112
  4. NEXPLANON [Suspect]
     Active Substance: ETONOGESTREL
     Indication: MENSTRUATION IRREGULAR
  5. NEXPLANON [Suspect]
     Active Substance: ETONOGESTREL
     Indication: ENDOMETRIOSIS
  6. ONDANSETRON HYDROCHLORIDE. [Concomitant]
     Active Substance: ONDANSETRON HYDROCHLORIDE
     Dosage: UNK
  7. TRAZODONE HYDROCHLORIDE. [Concomitant]
     Active Substance: TRAZODONE HYDROCHLORIDE
     Dosage: UNK

REACTIONS (8)
  - Pneumonia [Unknown]
  - Influenza [Unknown]
  - Nausea [Recovered/Resolved]
  - Mood swings [Recovered/Resolved]
  - Back pain [Recovered/Resolved]
  - Headache [Recovered/Resolved]
  - Muscle spasms [Recovered/Resolved]
  - Insomnia [Unknown]

NARRATIVE: CASE EVENT DATE: 20150119
